FAERS Safety Report 8621355-8 (Version None)
Quarter: 2012Q3

REPORT INFORMATION
  Report Type: 
  Country: None (occurrence: None)
  Receive Date: 20120824
  Receipt Date: 20120818
  Transmission Date: 20120928
  Serious: Yes (Hospitalization, Other)
  Sender: FDA-Public Use
  Company Number: ZA-ROCHE-1072930

PATIENT
  Sex: Female
  Weight: 82 kg

DRUGS (40)
  1. CHOLECALCIFEROL [Concomitant]
     Dates: start: 20110304
  2. STOPAYNE [Concomitant]
     Dosage: 2 TABS 6-8 HRLY PM
  3. PREDNISONE TAB [Concomitant]
     Route: 048
  4. SIMVASTATIN [Concomitant]
     Route: 048
     Dates: start: 20120531
  5. FLUOXETINE HCL [Concomitant]
     Route: 048
  6. ACTEMRA [Suspect]
     Indication: RHEUMATOID ARTHRITIS
     Dosage: LAST DOSE PRIOR TO SAE:26/APR/2012
     Route: 042
     Dates: start: 20110304, end: 20120525
  7. PREDNISOLONE [Concomitant]
     Dates: start: 20110623
  8. NUZAK [Concomitant]
     Dates: start: 20110729
  9. CRESTOR [Concomitant]
     Route: 048
     Dates: start: 20120526, end: 20120530
  10. SIMVASTATIN [Concomitant]
     Route: 048
  11. STILPANE TABLETS [Concomitant]
     Dates: start: 20100101
  12. BRAZEPAM [Concomitant]
     Dates: start: 20110916
  13. FOLIC ACID [Concomitant]
     Dates: start: 20110304
  14. CELEBREX [Concomitant]
     Dates: start: 20100101
  15. CEFAZOLIN [Concomitant]
  16. POTASSIUM CHLORIDE [Concomitant]
     Dosage: 40 MMOL STAT
  17. ATIVAN [Concomitant]
     Dosage: 4 HRLY PRN
  18. DORMICUM (SOUTH AFRICA) [Concomitant]
     Route: 048
  19. AMITRIPTYLINE HCL [Concomitant]
     Route: 048
     Dates: start: 20070101
  20. ASPIRIN [Concomitant]
  21. ASPIRIN [Concomitant]
     Route: 048
     Dates: start: 20120330
  22. DANTRON [Concomitant]
     Dosage: 4 MG 6 HRLY PRN
  23. LASIX [Concomitant]
  24. SLOW-K [Concomitant]
  25. PICOPREP [Concomitant]
     Route: 048
  26. LEVOTHYROXINE SODIUM [Concomitant]
     Route: 048
  27. PLACEBO [Suspect]
     Indication: RHEUMATOID ARTHRITIS
     Dosage: LAST DOSE PRIR TO SAE ON 18/MAY/2012
     Route: 048
     Dates: start: 20110304, end: 20120525
  28. CRESTOR [Concomitant]
  29. ERYTHROMYCIN [Concomitant]
     Route: 048
     Dates: end: 20120530
  30. TRAMADOL HYDROCHLORIDE/ACETAMINOPHEN [Concomitant]
     Route: 048
     Dates: end: 20120530
  31. VOLTAREN [Concomitant]
     Dosage: 12HRLY P/R X 3
     Dates: end: 20120529
  32. ANDOLEX C SPRAY [Concomitant]
     Dosage: PRN
  33. NUZAK [Concomitant]
     Route: 048
  34. TRAMADOL HYDROCHLORIDE [Concomitant]
     Route: 030
  35. DORMONOCT [Concomitant]
     Route: 048
  36. ASPIRIN [Concomitant]
     Route: 048
     Dates: end: 20120527
  37. ACETAMINOPHEN [Concomitant]
  38. ENOXAPARIN SODIUM [Concomitant]
     Route: 058
     Dates: end: 20120531
  39. PANTOCID [Concomitant]
     Route: 048
  40. CALCIFEROL [Concomitant]
     Dosage: '50000 U'

REACTIONS (4)
  - PERIPHERAL VASCULAR DISORDER [None]
  - AORTIC STENOSIS [None]
  - INFARCTION [None]
  - AORTIC ARTERIOSCLEROSIS [None]
